FAERS Safety Report 6928379-7 (Version None)
Quarter: 2010Q3

REPORT INFORMATION
  Report Type: 
  Country: None (occurrence: None)
  Receive Date: 20100817
  Receipt Date: 20100811
  Transmission Date: 20110219
  Serious: Yes (Other)
  Sender: FDA-Public Use
  Company Number: US-AMGEN-US358821

PATIENT
  Sex: Female

DRUGS (2)
  1. NPLATE [Suspect]
     Indication: IDIOPATHIC THROMBOCYTOPENIC PURPURA
     Route: 065
     Dates: start: 20090119, end: 20090508
  2. CORTICOSTEROIDS [Concomitant]
     Route: 065
     Dates: start: 20080612

REACTIONS (1)
  - THERAPEUTIC RESPONSE DECREASED [None]
